FAERS Safety Report 12340814 (Version 1)
Quarter: 2016Q2

REPORT INFORMATION
  Report Type: Spontaneous
  Country: US (occurrence: None)
  Receive Date: 20160505
  Receipt Date: 20160505
  Transmission Date: 20160815
  Serious: Yes (Disabling, Other)
  Sender: FDA-Public Use
  Company Number: None

PATIENT
  Age: 33 Year
  Sex: Female
  Weight: 93.44 kg

DRUGS (6)
  1. PRE-NATAL VITAMINS [Concomitant]
  2. TYLENOL [Concomitant]
     Active Substance: ACETAMINOPHEN
  3. ABILIFY [Suspect]
     Active Substance: ARIPIPRAZOLE
     Indication: MAJOR DEPRESSION
     Dosage: 1 CAPSULE)S) FOUR TIMES A DAY TAKEN BY MOUTH
     Route: 048
     Dates: start: 20130104, end: 20150525
  4. LABEDALOL [Concomitant]
  5. IBUPROFEN. [Concomitant]
     Active Substance: IBUPROFEN
  6. SINGULAIR [Concomitant]
     Active Substance: MONTELUKAST SODIUM

REACTIONS (7)
  - Impaired work ability [None]
  - Emotional disorder [None]
  - Activities of daily living impaired [None]
  - Dizziness [None]
  - Confusional state [None]
  - Suicidal ideation [None]
  - Judgement impaired [None]

NARRATIVE: CASE EVENT DATE: 20160418
